FAERS Safety Report 6436899-7 (Version None)
Quarter: 2009Q4

REPORT INFORMATION
  Report Type: 
  Country: None (occurrence: None)
  Receive Date: 20091109
  Receipt Date: 20091030
  Transmission Date: 20100525
  Serious: Yes (Hospitalization)
  Sender: FDA-Public Use
  Company Number: WAES 0911USA00099

PATIENT
  Age: 39 Year
  Sex: Male

DRUGS (13)
  1. ISENTRESS [Suspect]
     Indication: HIV INFECTION
     Dosage: 400 MG/BID/PO
     Route: 048
     Dates: start: 20090220, end: 20090302
  2. DARUNAVIR UNK [Suspect]
     Indication: HIV INFECTION
     Dosage: 600 MG/BID
     Dates: start: 20090220, end: 20090223
  3. ENFUVIRTIDE UNK [Suspect]
     Indication: HIV INFECTION
     Dosage: 90 MG/BID
     Dates: start: 20090220, end: 20090224
  4. BACTRIM DS [Concomitant]
  5. KALETRA [Concomitant]
  6. LEXIVA [Concomitant]
  7. REYATAZ [Concomitant]
  8. TRUVADA [Concomitant]
  9. TYLENOL (CAPLET) [Concomitant]
  10. AZITHROMYCIN [Concomitant]
  11. FLUCONAZOLE [Concomitant]
  12. RITONAVIR [Concomitant]
  13. TENOFOVIR DISOPROXIL FUMARATE [Concomitant]

REACTIONS (7)
  - CONJUNCTIVITIS VIRAL [None]
  - COUGH [None]
  - DIARRHOEA [None]
  - GIARDIASIS [None]
  - PNEUMOCYSTIS JIROVECI PNEUMONIA [None]
  - PRURITUS [None]
  - RASH MACULO-PAPULAR [None]
